FAERS Safety Report 4465397-5 (Version None)
Quarter: 2004Q3

REPORT INFORMATION
  Report Type: 
  Country: None (occurrence: None)
  Receive Date: 20040930
  Receipt Date: 20040923
  Transmission Date: 20050211
  Serious: Yes (Hospitalization, Other)
  Sender: FDA-Public Use
  Company Number: DE-2004-028012

PATIENT
  Age: 30 Year
  Sex: Female
  Weight: 58 kg

DRUGS (1)
  1. MIRENA [Suspect]
     Indication: CONTRACEPTION
     Dosage: 20 UG/DAY, CONT, INTRA-UTERINE
     Route: 015
     Dates: start: 20020901, end: 20030901

REACTIONS (9)
  - ABORTION MISSED [None]
  - COMPLICATION OF DEVICE REMOVAL [None]
  - DEVICE FAILURE [None]
  - DRUG EXPOSURE DURING PREGNANCY [None]
  - INFLAMMATION [None]
  - METRORRHAGIA [None]
  - PYREXIA [None]
  - THROMBOSIS [None]
  - UTERINE LEIOMYOMA [None]
